FAERS Safety Report 15334042 (Version 1)
Quarter: 2018Q3

REPORT INFORMATION
  Report Type: Other
  Country: NL (occurrence: NL)
  Receive Date: 20180830
  Receipt Date: 20180830
  Transmission Date: 20181010
  Serious: Yes (Other)
  Sender: FDA-Public Use
  Company Number: NL-APOTEX-2018AP020008

PATIENT
  Age: 46 Year
  Sex: Female

DRUGS (6)
  1. CELECOXIB. [Suspect]
     Active Substance: CELECOXIB
     Dosage: 0.1 MG, 30 MIN
     Route: 048
  2. CELECOXIB. [Suspect]
     Active Substance: CELECOXIB
     Dosage: 1 MG, 30MIN
     Route: 048
  3. CELECOXIB. [Suspect]
     Active Substance: CELECOXIB
     Dosage: 50 MG, 30 MIN
     Route: 048
  4. CELECOXIB. [Suspect]
     Active Substance: CELECOXIB
     Indication: PRODUCT USED FOR UNKNOWN INDICATION
     Dosage: 20 MG, 30 MIN
     Route: 048
  5. CELECOXIB. [Suspect]
     Active Substance: CELECOXIB
     Dosage: 10 MG, 30 MIN
     Route: 048
  6. CELECOXIB. [Suspect]
     Active Substance: CELECOXIB
     Dosage: 100 MG, 60 MIN
     Route: 048

REACTIONS (3)
  - Hypersensitivity [Unknown]
  - Angioedema [Unknown]
  - Urticaria [Unknown]
